FAERS Safety Report 5329903-0 (Version None)
Quarter: 2007Q2

REPORT INFORMATION
  Report Type: 
  Country: None (occurrence: None)
  Receive Date: 20070517
  Receipt Date: 20070517
  Transmission Date: 20071010
  Serious: Yes (Hospitalization)
  Sender: FDA-Public Use
  Company Number: None

PATIENT
  Age: 34 Year
  Sex: Male
  Weight: 67.1 kg

DRUGS (5)
  1. RISPERIDONE [Suspect]
     Dosage: 4MG, AT HS,BY MOUTH
     Route: 048
     Dates: start: 20070330, end: 20070413
  2. BISACODYL (ENTERIC COATED) [Concomitant]
  3. ACETAMINOPHEN [Concomitant]
  4. LORAZEPAM [Concomitant]
  5. MORPHINE SULFATE [Concomitant]

REACTIONS (3)
  - HYPOTENSION [None]
  - PYREXIA [None]
  - TACHYCARDIA [None]
